FAERS Safety Report 8888844 (Version 3)
Quarter: 2013Q2

REPORT INFORMATION
  Report Type: Report from Study
  Country: JP (occurrence: JP)
  Receive Date: 20121106
  Receipt Date: 20130424
  Transmission Date: 20140414
  Serious: Yes (Other)
  Sender: FDA-Public Use
  Company Number: JP-009507513-1210JPN014424

PATIENT
  Age: 61 Year
  Sex: Female
  Weight: 45 kg

DRUGS (8)
  1. PEGINTRON [Suspect]
     Indication: CHRONIC HEPATITIS C
     Dosage: 1.5 MICROGRAM PER KILOGRAM, QW
     Route: 058
     Dates: start: 20120705, end: 20121228
  2. REBETOL [Suspect]
     Indication: CHRONIC HEPATITIS C
     Dosage: 400 MG, QD
     Route: 048
     Dates: start: 20120705, end: 20120718
  3. REBETOL [Suspect]
     Dosage: 200 MG, QD
     Route: 048
     Dates: start: 20120719, end: 20120822
  4. REBETOL [Suspect]
     Dosage: 200MG/2DAYS
     Route: 048
     Dates: start: 20121121, end: 20121215
  5. TELAVIC [Suspect]
     Indication: CHRONIC HEPATITIS C
     Dosage: 1500 MG, QD
     Route: 048
     Dates: start: 20120705, end: 20120925
  6. LOXONIN [Concomitant]
     Indication: PROPHYLAXIS
     Dosage: 60 MG/DAY,PRN FORMLATION:POR
     Route: 048
     Dates: start: 20120705
  7. MUCOSTA [Concomitant]
     Indication: PROPHYLAXIS
     Dosage: 100 MG/DAY, PRN FOR:POR
     Route: 048
     Dates: start: 20120705
  8. ALLEGRA [Concomitant]
     Indication: PROPHYLAXIS
     Dosage: 120 MG, QD,FOR:POR
     Route: 048

REACTIONS (1)
  - Anaemia [Recovering/Resolving]
